FAERS Safety Report 19211444 (Version 1)
Quarter: 2021Q2

REPORT INFORMATION
  Report Type: Spontaneous
  Country: US (occurrence: US)
  Receive Date: 20210503
  Receipt Date: 20210503
  Transmission Date: 20210717
  Serious: No
  Sender: FDA-Public Use
  Company Number: None

PATIENT
  Age: 71 Year
  Sex: Male

DRUGS (2)
  1. GENGRAF [Suspect]
     Active Substance: CYCLOSPORINE
     Indication: APLASTIC ANAEMIA
     Dates: start: 20210128
  2. ELTROMBOPAG (ELTROMBOPAG 50MG TAB) [Suspect]
     Active Substance: ELTROMBOPAG
     Indication: APLASTIC ANAEMIA
     Dates: start: 20210128

REACTIONS (6)
  - Jaundice [None]
  - Blood creatinine increased [None]
  - Blood urea increased [None]
  - Abdominal pain [None]
  - Acute kidney injury [None]
  - Ocular icterus [None]

NARRATIVE: CASE EVENT DATE: 20210409
